FAERS Safety Report 9168927 (Version 2)
Quarter: 2013Q1

REPORT INFORMATION
  Report Type: Spontaneous
  Country: FR (occurrence: FR)
  Receive Date: 20130318
  Receipt Date: 20130322
  Transmission Date: 20140127
  Serious: Yes (Hospitalization)
  Sender: FDA-Public Use
  Company Number: FR-PFIZER INC-2013085552

PATIENT
  Age: 62 Year
  Sex: Male
  Weight: 87 kg

DRUGS (8)
  1. TAZOCILLINE [Suspect]
     Dosage: UNK
     Route: 042
     Dates: start: 20130101, end: 20130201
  2. TAZOCILLINE [Suspect]
     Dosage: UNK
     Dates: start: 20130207, end: 20130210
  3. CIFLOX [Suspect]
     Dosage: UNK
     Dates: start: 20130101, end: 20130124
  4. CIFLOX [Suspect]
     Dosage: UNK
     Dates: start: 20130207, end: 20130210
  5. APROVEL [Concomitant]
     Indication: HYPERTENSION
  6. TAHOR [Concomitant]
     Dosage: UNK
     Dates: start: 201301, end: 20130216
  7. KARDEGIC [Concomitant]
     Dosage: UNK
     Dates: start: 201301, end: 20130216
  8. BISOPROLOL [Concomitant]
     Dosage: UNK
     Dates: start: 201301, end: 20130216

REACTIONS (7)
  - Drug reaction with eosinophilia and systemic symptoms [Recovering/Resolving]
  - Eosinophilia [Unknown]
  - Pyrexia [Recovered/Resolved]
  - Hepatitis cholestatic [Not Recovered/Not Resolved]
  - Renal failure acute [Not Recovered/Not Resolved]
  - Dermatitis exfoliative [Unknown]
  - Tubulointerstitial nephritis [Recovering/Resolving]
